FAERS Safety Report 7450753-3 (Version None)
Quarter: 2011Q2

REPORT INFORMATION
  Report Type: 
  Country: None (occurrence: None)
  Receive Date: 20110502
  Receipt Date: 20110420
  Transmission Date: 20111010
  Serious: Yes (Hospitalization, Other)
  Sender: FDA-Public Use
  Company Number: FR-ELI_LILLY_AND_COMPANY-FR201104005785

PATIENT
  Sex: Male

DRUGS (3)
  1. GEMZAR [Suspect]
     Indication: LUNG NEOPLASM MALIGNANT
     Dosage: UNK
     Route: 042
     Dates: start: 20101213, end: 20110119
  2. CISPLATIN [Concomitant]
     Dosage: UNK
     Dates: start: 20101213
  3. CORTANCYL [Concomitant]
     Dosage: 40 MG, UNK

REACTIONS (6)
  - HYPONATRAEMIA [None]
  - HYPERKALAEMIA [None]
  - INTERSTITIAL LUNG DISEASE [None]
  - DECREASED APPETITE [None]
  - BRONCHITIS [None]
  - NEUTROPENIA [None]
